FAERS Safety Report 13214258 (Version 1)
Quarter: 2017Q1

REPORT INFORMATION
  Report Type: Spontaneous
  Country: JP (occurrence: JP)
  Receive Date: 20170210
  Receipt Date: 20170210
  Transmission Date: 20170428
  Serious: Yes (Death, Hospitalization, Other)
  Sender: FDA-Public Use
  Company Number: JP-GILEAD-2012-0061708

PATIENT
  Age: 79 Year
  Sex: Male
  Weight: 63 kg

DRUGS (17)
  1. HERBESSER [Concomitant]
     Active Substance: DILTIAZEM HYDROCHLORIDE
     Indication: PULMONARY HYPERTENSION
     Route: 048
     Dates: start: 20060419
  2. TRACLEER [Concomitant]
     Active Substance: BOSENTAN
     Dosage: 2IUAX TWICE PER DAY
     Route: 048
     Dates: start: 20080108, end: 20120716
  3. SAMSCA [Concomitant]
     Active Substance: TOLVAPTAN
     Dosage: .5IUAX PER DAY
     Route: 048
     Dates: start: 20120731, end: 20120813
  4. LUPRAC [Concomitant]
     Active Substance: TORSEMIDE
     Indication: PULMONARY HYPERTENSION
     Dosage: 2IUAX PER DAY
     Route: 048
     Dates: start: 20071201
  5. TRACLEER [Concomitant]
     Active Substance: BOSENTAN
     Dosage: 2IUAX TWICE PER DAY
     Route: 048
     Dates: start: 20120728
  6. PROMAC                             /00024401/ [Concomitant]
     Active Substance: NITROFURANTOIN
     Dosage: 1IUAX TWICE PER DAY
     Route: 048
     Dates: start: 20120619
  7. AMBRISENTAN [Suspect]
     Active Substance: AMBRISENTAN
     Indication: PULMONARY HYPERTENSION
     Dosage: 2.5MG TWICE PER DAY
     Route: 048
     Dates: start: 20120717, end: 20120725
  8. PROSNER [Concomitant]
     Indication: PULMONARY HYPERTENSION
     Dosage: 1IUAX THREE TIMES PER DAY
     Route: 048
     Dates: start: 20060413
  9. REVATIO [Concomitant]
     Active Substance: SILDENAFIL CITRATE
     Indication: PULMONARY HYPERTENSION
     Dosage: 20MG TWICE PER DAY
     Route: 048
     Dates: start: 20090803
  10. PROCYLIN [Concomitant]
     Active Substance: BERAPROST SODIUM
     Route: 048
  11. SPIRONOLACTONE. [Concomitant]
     Active Substance: SPIRONOLACTONE
     Dosage: 1IUAX PER DAY
     Route: 048
     Dates: start: 20120327
  12. PROCYLIN [Concomitant]
     Active Substance: BERAPROST SODIUM
     Route: 048
  13. FUROSEMIDE. [Concomitant]
     Active Substance: FUROSEMIDE
     Dosage: 1IUAX PER DAY
     Route: 048
     Dates: start: 20120322
  14. PROCYLIN [Concomitant]
     Active Substance: BERAPROST SODIUM
     Route: 048
  15. AMBRISENTAN [Suspect]
     Active Substance: AMBRISENTAN
     Indication: PULMONARY HYPERTENSION
  16. WARFARIN [Concomitant]
     Active Substance: WARFARIN
     Indication: PULMONARY HYPERTENSION
     Dosage: 3IUAX PER DAY
     Route: 048
     Dates: start: 20060404
  17. VIAGRA [Concomitant]
     Active Substance: SILDENAFIL CITRATE
     Dosage: .5IUAX PER DAY
     Route: 048
     Dates: start: 20071112, end: 20071119

REACTIONS (9)
  - Eyelid oedema [Recovering/Resolving]
  - Blood creatinine increased [Unknown]
  - Oedema peripheral [Recovering/Resolving]
  - Face oedema [Recovered/Resolved]
  - Scrotal oedema [Unknown]
  - Off label use [Recovered/Resolved]
  - Ascites [Unknown]
  - Weight increased [Unknown]
  - Death [Fatal]

NARRATIVE: CASE EVENT DATE: 20120717
